FAERS Safety Report 8134700-7 (Version None)
Quarter: 2012Q1

REPORT INFORMATION
  Report Type: 
  Country: None (occurrence: None)
  Receive Date: 20120214
  Receipt Date: 20120209
  Transmission Date: 20120608
  Serious: Yes (Life-Threatening, Hospitalization)
  Sender: FDA-Public Use
  Company Number: US-ELI_LILLY_AND_COMPANY-US201202003078

PATIENT
  Sex: Female

DRUGS (4)
  1. ADCIRCA [Suspect]
     Dosage: UNK, UNKNOWN
  2. TYVASO [Concomitant]
     Indication: PULMONARY ARTERIAL HYPERTENSION
     Dosage: UNK
     Route: 055
     Dates: start: 20110512
  3. TRACLEER [Concomitant]
  4. DIURETICS [Concomitant]

REACTIONS (3)
  - PNEUMONIA [None]
  - CARDIAC FAILURE CONGESTIVE [None]
  - CHEST PAIN [None]
